FAERS Safety Report 17810772 (Version 1)
Quarter: 2020Q2

REPORT INFORMATION
  Report Type: Report from Study
  Country: IT (occurrence: IT)
  Receive Date: 20200521
  Receipt Date: 20200521
  Transmission Date: 20200714
  Serious: Yes (Hospitalization)
  Sender: FDA-Public Use
  Company Number: IT-SA-2020SA107331

PATIENT
  Age: 56 Year
  Sex: Female
  Weight: 70 kg

DRUGS (5)
  1. PLAQUENIL [Concomitant]
     Active Substance: HYDROXYCHLOROQUINE SULFATE
     Indication: PRE-EXISTING DISEASE
     Dosage: 400 MG, QD
     Route: 048
     Dates: start: 20200405
  2. ROCEFIN [Concomitant]
     Active Substance: CEFTRIAXONE SODIUM
     Indication: PROPHYLAXIS
     Dosage: 2000 MG, QD
     Route: 042
     Dates: start: 20200404, end: 20200414
  3. SARILUMAB [Suspect]
     Active Substance: SARILUMAB
     Indication: COVID-19
     Dosage: INTENDED DOSE: 1 BAG AT INFUSION RATE OF 102 ML/HOUR, 1X
     Route: 041
     Dates: start: 20200410, end: 20200410
  4. AZITROMICINA [Concomitant]
     Active Substance: AZITHROMYCIN DIHYDRATE
     Indication: PROPHYLAXIS
     Dosage: 500 MG, QD
     Route: 048
     Dates: start: 20200405, end: 20200414
  5. REZOLSTA [Concomitant]
     Active Substance: COBICISTAT\DARUNAVIR ETHANOLATE
     Indication: PRE-EXISTING DISEASE
     Dosage: 950 MG, QD
     Route: 048
     Dates: start: 20200405

REACTIONS (1)
  - Neutropenia [Recovered/Resolved]

NARRATIVE: CASE EVENT DATE: 20200417
